FAERS Safety Report 8634606 (Version 3)
Quarter: 2013Q4

REPORT INFORMATION
  Report Type: Spontaneous
  Country: US (occurrence: US)
  Receive Date: 20120626
  Receipt Date: 20131209
  Transmission Date: 20140711
  Serious: Yes (Hospitalization, Other)
  Sender: FDA-Public Use
  Company Number: US-BAYER-2012-061840

PATIENT
  Age: 26 Year
  Sex: Female
  Weight: 72.56 kg

DRUGS (9)
  1. YAZ [Suspect]
     Indication: CONTRACEPTION
  2. YAZ [Suspect]
     Indication: HORMONE LEVEL ABNORMAL
  3. YASMIN [Suspect]
     Indication: CONTRACEPTION
  4. YASMIN [Suspect]
     Indication: HORMONE LEVEL ABNORMAL
  5. GABITRIL [Concomitant]
     Dosage: 4 MG, BID
  6. ZOLOFT [Concomitant]
  7. LEVOTHYROXINE [Concomitant]
  8. XANAX [Concomitant]
  9. ALPRAZOLAM [Concomitant]

REACTIONS (11)
  - Cholelithiasis [None]
  - Cholecystitis chronic [None]
  - Depression [None]
  - Alopecia [None]
  - Anxiety [None]
  - Gallbladder injury [None]
  - Injury [None]
  - Emotional distress [None]
  - Psychological trauma [None]
  - Abdominal pain [None]
  - Anxiety [None]
